FAERS Safety Report 10501240 (Version 1)
Quarter: 2014Q4

REPORT INFORMATION
  Report Type: Spontaneous
  Country: US (occurrence: None)
  Receive Date: 20141006
  Receipt Date: 20141006
  Transmission Date: 20150528
  Serious: Yes (Other)
  Sender: FDA-Public Use
  Company Number: None

PATIENT
  Sex: Female
  Weight: 75.75 kg

DRUGS (9)
  1. LEVOFLOXACIN. [Suspect]
     Active Substance: LEVOFLOXACIN
     Indication: CELLULITIS
     Route: 048
     Dates: start: 20140907, end: 20140912
  2. CARDURA [Concomitant]
     Active Substance: DOXAZOSIN MESYLATE
  3. CARDEZEM [Concomitant]
  4. FOLIC ACID. [Concomitant]
     Active Substance: FOLIC ACID
  5. LEVOFLOXACIN. [Suspect]
     Active Substance: LEVOFLOXACIN
     Indication: ARTHRITIS
     Route: 048
     Dates: start: 20140907, end: 20140912
  6. LEVOTHYSECIN [Concomitant]
  7. HYDRODRLOZOTHIGIN [Concomitant]
  8. COUMADIN [Concomitant]
     Active Substance: WARFARIN SODIUM
  9. KONSYL [Concomitant]

REACTIONS (7)
  - Walking aid user [None]
  - Muscle strain [None]
  - Gait disturbance [None]
  - Joint swelling [None]
  - Peripheral swelling [None]
  - Arthralgia [None]
  - Sensory disturbance [None]
